FAERS Safety Report 22727099 (Version 3)
Quarter: 2024Q1

REPORT INFORMATION
  Report Type: Spontaneous
  Country: US (occurrence: US)
  Receive Date: 20230720
  Receipt Date: 20240320
  Transmission Date: 20240410
  Serious: No
  Sender: FDA-Public Use
  Company Number: US-GLENMARK PHARMACEUTICALS-2023GMK083379

PATIENT

DRUGS (1)
  1. IMIQUIMOD [Suspect]
     Active Substance: IMIQUIMOD
     Indication: Papilloma viral infection
     Dosage: UNK
     Route: 065

REACTIONS (3)
  - Ill-defined disorder [Unknown]
  - Product use in unapproved indication [Unknown]
  - Burning sensation [Unknown]
